FAERS Safety Report 17679666 (Version 1)
Quarter: 2020Q2

REPORT INFORMATION
  Report Type: Spontaneous
  Country: US (occurrence: US)
  Receive Date: 20200417
  Receipt Date: 20200417
  Transmission Date: 20200714
  Serious: Yes (Death, Other)
  Sender: FDA-Public Use
  Company Number: US-MYLANLABS-2020M1036915

PATIENT
  Sex: Male

DRUGS (6)
  1. FOSAPREPITANT [Suspect]
     Active Substance: FOSAPREPITANT
     Indication: COLON CANCER
     Dosage: UNK
     Route: 042
  2. PALONOSETRON. [Suspect]
     Active Substance: PALONOSETRON HYDROCHLORIDE
     Indication: COLON CANCER
     Dosage: UNK
     Route: 042
  3. LEUCOVORIN CALCIUM FOR INJECTION [Suspect]
     Active Substance: LEUCOVORIN CALCIUM
     Indication: COLON CANCER
     Dosage: UNK
     Route: 042
     Dates: start: 20191202
  4. DEXAMETHASONE SODIUM PHOSPHATE. [Suspect]
     Active Substance: DEXAMETHASONE SODIUM PHOSPHATE
     Indication: COLON CANCER
     Dosage: UNK
     Route: 042
     Dates: start: 20191231
  5. OXALIPLATIN. [Suspect]
     Active Substance: OXALIPLATIN
     Indication: COLON CANCER
     Dosage: UNK
     Dates: start: 20200217
  6. FLUOROURACIL. [Suspect]
     Active Substance: FLUOROURACIL
     Indication: COLON CANCER
     Dosage: UNK

REACTIONS (8)
  - Hypoxia [Unknown]
  - Tachycardia [Unknown]
  - Retching [Unknown]
  - Blood pressure abnormal [Unknown]
  - Pallor [Unknown]
  - Dyspnoea [Fatal]
  - Hyperhidrosis [Unknown]
  - Sluggishness [Not Recovered/Not Resolved]
